FAERS Safety Report 7618913-6 (Version None)
Quarter: 2011Q3

REPORT INFORMATION
  Report Type: 
  Country: None (occurrence: None)
  Receive Date: 20110718
  Receipt Date: 20110711
  Transmission Date: 20111222
  Serious: Yes (Hospitalization)
  Sender: FDA-Public Use
  Company Number: US-B.I. PHARMACEUTICALS,INC./RIDGEFIELD-2011-BP-01488BP

PATIENT
  Sex: Female
  Weight: 63.5 kg

DRUGS (9)
  1. PRADAXA [Suspect]
     Indication: ATRIAL FIBRILLATION
     Dosage: 300 MG
     Route: 048
     Dates: start: 20110114, end: 20110115
  2. TRAMADOL HCL [Concomitant]
  3. DIGOXIN [Concomitant]
     Dosage: 0.125 MG
  4. AMIODARONE HCL [Concomitant]
  5. DILTIAZEM [Concomitant]
     Dosage: 240 MG
  6. SIMVASTATIN [Concomitant]
     Dosage: 40 MG
  7. LISINOPRIL [Concomitant]
     Dosage: 2.5 MG
  8. TYLENOL-500 [Concomitant]
  9. LASIX [Concomitant]
     Dosage: 40 MG

REACTIONS (4)
  - GASTROINTESTINAL HAEMORRHAGE [None]
  - HAEMATOCHEZIA [None]
  - CLOSTRIDIAL INFECTION [None]
  - CEREBRAL ATROPHY [None]
